FAERS Safety Report 24568676 (Version 4)
Quarter: 2025Q1

REPORT INFORMATION
  Report Type: Report from Study
  Country: CA (occurrence: CA)
  Receive Date: 20241031
  Receipt Date: 20250305
  Transmission Date: 20250408
  Serious: Yes (Other)
  Sender: TAKEDA
  Company Number: CA-TAKEDA-2024TUS108568

PATIENT
  Age: 58 Year
  Sex: Female

DRUGS (6)
  1. VEDOLIZUMAB [Suspect]
     Active Substance: VEDOLIZUMAB
     Indication: Colitis microscopic
  2. VEDOLIZUMAB [Suspect]
     Active Substance: VEDOLIZUMAB
     Dosage: 300 MILLIGRAM, Q4WEEKS
     Dates: start: 20250227
  3. PREDNISONE [Concomitant]
     Active Substance: PREDNISONE
  4. IMURAN [Concomitant]
     Active Substance: AZATHIOPRINE
  5. IRON [Concomitant]
     Active Substance: IRON
     Indication: Supplementation therapy
  6. Cortiment [Concomitant]

REACTIONS (3)
  - Colitis microscopic [Recovering/Resolving]
  - Frequent bowel movements [Recovering/Resolving]
  - Off label use [Unknown]

NARRATIVE: CASE EVENT DATE: 20240909
